FAERS Safety Report 6536712-3 (Version None)
Quarter: 2010Q1

REPORT INFORMATION
  Report Type: 
  Country: None (occurrence: None)
  Receive Date: 20100113
  Receipt Date: 20100101
  Transmission Date: 20100710
  Serious: Yes (Other)
  Sender: FDA-Public Use
  Company Number: US-PFIZER INC-2010002273

PATIENT
  Sex: Male

DRUGS (1)
  1. ALPRAZOLAM [Suspect]
     Route: 048

REACTIONS (5)
  - FEELING ABNORMAL [None]
  - FEELING DRUNK [None]
  - INTENTIONAL DRUG MISUSE [None]
  - SEDATION [None]
  - SOMNOLENCE [None]
